FAERS Safety Report 6409301-9 (Version None)
Quarter: 2009Q4

REPORT INFORMATION
  Report Type: 
  Country: None (occurrence: None)
  Receive Date: 20091021
  Receipt Date: 20091013
  Transmission Date: 20100525
  Serious: Yes (Other)
  Sender: FDA-Public Use
  Company Number: US-AMGEN-QUU369190

PATIENT
  Sex: Female

DRUGS (3)
  1. ENBREL [Suspect]
     Indication: DRUG USE FOR UNKNOWN INDICATION
     Route: 058
     Dates: start: 19990101, end: 20070101
  2. HYDROCHLOROTHIAZIDE [Concomitant]
     Route: 048
  3. TRAMADOL HCL [Concomitant]
     Route: 048

REACTIONS (1)
  - ABORTION INDUCED [None]
